FAERS Safety Report 24985223 (Version 1)
Quarter: 2025Q1

REPORT INFORMATION
  Report Type: Spontaneous
  Country: JP (occurrence: JP)
  Receive Date: 20250219
  Receipt Date: 20250219
  Transmission Date: 20250409
  Serious: Yes (Other)
  Sender: MYLAN
  Company Number: JP-VIATRISJAPAN-2025M1013991AA

PATIENT
  Age: 51 Year
  Sex: Male

DRUGS (5)
  1. AMLODIPINE [Suspect]
     Active Substance: AMLODIPINE BESYLATE
     Indication: Hypertension
     Route: 065
  2. CLARITHROMYCIN [Concomitant]
     Active Substance: CLARITHROMYCIN
     Indication: Granuloma annulare
     Route: 065
  3. METHYLPREDNISOLONE [Concomitant]
     Active Substance: METHYLPREDNISOLONE
     Indication: Granuloma annulare
     Route: 048
  4. BARICITINIB [Concomitant]
     Active Substance: BARICITINIB
     Indication: Granuloma annulare
     Route: 065
  5. TRANILAST [Concomitant]
     Active Substance: TRANILAST
     Indication: Granuloma annulare
     Route: 048

REACTIONS (1)
  - Granuloma annulare [Recovered/Resolved]
